FAERS Safety Report 9714884 (Version 1)
Quarter: 2013Q4

REPORT INFORMATION
  Report Type: Report from Study
  Country: US (occurrence: US)
  Receive Date: 20131126
  Receipt Date: 20131126
  Transmission Date: 20140711
  Serious: Yes (Hospitalization)
  Sender: FDA-Public Use
  Company Number: US-ACTELION-A-US2013-91620

PATIENT
  Age: 34 Year
  Sex: Female

DRUGS (1)
  1. VELETRI [Suspect]
     Indication: COR PULMONALE CHRONIC
     Dosage: 54 NG/KG, PER MIN
     Route: 042
     Dates: start: 20121114

REACTIONS (2)
  - Pneumothorax [Unknown]
  - Post procedural complication [Unknown]
